FAERS Safety Report 5356893-7 (Version None)
Quarter: 2007Q2

REPORT INFORMATION
  Report Type: 
  Country: None (occurrence: None)
  Receive Date: 20070530
  Receipt Date: 20061017
  Transmission Date: 20071010
  Serious: Yes (Hospitalization)
  Sender: FDA-Public Use
  Company Number: US200608003243

PATIENT
  Age: 42 Year
  Sex: Female
  Weight: 93 kg

DRUGS (2)
  1. ZYPREXA [Suspect]
     Indication: BIPOLAR DISORDER
     Dosage: 10 MG
     Dates: start: 20000101, end: 20050401
  2. FLUOXETINE ^POLYFARMA^(FLUOXETINE) [Concomitant]

REACTIONS (6)
  - BLOOD CHOLESTEROL [None]
  - BLOOD TRIGLYCERIDES [None]
  - DIABETES MELLITUS [None]
  - DIABETIC COMA [None]
  - HYPERGLYCAEMIC HYPEROSMOLAR NONKETOTIC SYNDROME [None]
  - PANCREATITIS [None]
